FAERS Safety Report 6540049-6 (Version None)
Quarter: 2010Q1

REPORT INFORMATION
  Report Type: 
  Country: None (occurrence: None)
  Receive Date: 20100115
  Receipt Date: 20091127
  Transmission Date: 20100710
  Serious: Yes (Hospitalization)
  Sender: FDA-Public Use
  Company Number: US-SANOFI-AVENTIS-2010SA000068

PATIENT
  Age: 70 Year
  Sex: Male

DRUGS (10)
  1. ELOXATIN [Suspect]
     Indication: COLORECTAL CANCER
     Route: 042
     Dates: start: 20090916, end: 20090916
  2. ELOXATIN [Suspect]
     Route: 042
     Dates: start: 20090714, end: 20090714
  3. BEVACIZUMAB [Suspect]
     Indication: COLORECTAL CANCER
     Route: 042
     Dates: start: 20090916, end: 20090916
  4. BEVACIZUMAB [Suspect]
     Route: 042
     Dates: start: 20090714, end: 20090714
  5. LEUCOVORIN CALCIUM [Suspect]
     Indication: COLORECTAL CANCER
     Route: 042
     Dates: start: 20090714, end: 20090714
  6. LEUCOVORIN CALCIUM [Suspect]
     Route: 042
     Dates: start: 20090916, end: 20090916
  7. MONOCLONAL ANTIBODIES [Suspect]
     Indication: COLORECTAL CANCER
     Route: 042
     Dates: start: 20090916, end: 20090916
  8. MONOCLONAL ANTIBODIES [Suspect]
     Route: 042
     Dates: start: 20090714, end: 20090714
  9. FLUOROURACIL [Suspect]
     Indication: COLORECTAL CANCER
     Route: 042
     Dates: start: 20090918, end: 20090918
  10. FLUOROURACIL [Suspect]
     Route: 042
     Dates: start: 20090714, end: 20090714

REACTIONS (1)
  - CROHN'S DISEASE [None]
